FAERS Safety Report 17346189 (Version 1)
Quarter: 2020Q1

REPORT INFORMATION
  Report Type: Spontaneous
  Country: IT (occurrence: IT)
  Receive Date: 20200129
  Receipt Date: 20200129
  Transmission Date: 20200409
  Serious: Yes (Other)
  Sender: FDA-Public Use
  Company Number: IT-EXELIXIS-CABO-19023930

PATIENT
  Age: 72 Year
  Sex: Male

DRUGS (9)
  1. CABOMETYX [Suspect]
     Active Substance: CABOZANTINIB S-MALATE
     Indication: NEOPLASM MALIGNANT
     Dosage: 60 MG, QD
     Route: 048
     Dates: start: 20181222, end: 20190123
  2. METFONORM [Concomitant]
     Active Substance: METFORMIN HYDROCHLORIDE
  3. PALEXIA [Concomitant]
     Active Substance: TAPENTADOL HYDROCHLORIDE
  4. CARDIRENE [Concomitant]
     Active Substance: ASPIRIN DL-LYSINE
  5. CABOMETYX [Suspect]
     Active Substance: CABOZANTINIB S-MALATE
     Dosage: 40 MG
     Route: 048
     Dates: start: 20190124
  6. OLPREZIDE [Concomitant]
     Active Substance: HYDROCHLOROTHIAZIDE\OLMESARTAN MEDOXOMIL
  7. KEPPRA [Concomitant]
     Active Substance: LEVETIRACETAM
  8. BISOPROLOLO [Concomitant]
     Active Substance: BISOPROLOL FUMARATE
  9. DIBASE [Concomitant]
     Active Substance: CHOLECALCIFEROL

REACTIONS (1)
  - Hypertension [Recovering/Resolving]

NARRATIVE: CASE EVENT DATE: 20190118
